FAERS Safety Report 21498884 (Version 2)
Quarter: 2022Q4

REPORT INFORMATION
  Report Type: Spontaneous
  Country: DE (occurrence: DE)
  Receive Date: 20221024
  Receipt Date: 20221031
  Transmission Date: 20230113
  Serious: Yes (Hospitalization, Other)
  Sender: FDA-Public Use
  Company Number: DE-EXELTIS PHARMACEUTICAL HOLDING, S.L.-2210DE04165

PATIENT
  Age: 53 Year
  Sex: Female

DRUGS (5)
  1. DROSPIRENONE [Suspect]
     Active Substance: DROSPIRENONE
     Indication: Contraception
     Dosage: 4 MILLIGRAM, QD
     Dates: start: 20220225, end: 20220925
  2. RAMIPRIL [Concomitant]
     Active Substance: RAMIPRIL
  3. FERROUS GLUCONATE [Concomitant]
     Active Substance: FERROUS GLUCONATE
     Dosage: OCCASIONALLY
  4. VITAMIN B12 [Concomitant]
     Active Substance: CYANOCOBALAMIN
  5. FOLIC ACID [Concomitant]
     Active Substance: FOLIC ACID
     Dosage: UNK

REACTIONS (2)
  - Pulmonary embolism [Recovered/Resolved with Sequelae]
  - Dyspnoea [Not Recovered/Not Resolved]

NARRATIVE: CASE EVENT DATE: 20220922
